FAERS Safety Report 12757541 (Version 1)
Quarter: 2016Q3

REPORT INFORMATION
  Report Type: Spontaneous
  Country: US (occurrence: US)
  Receive Date: 20160919
  Receipt Date: 20160919
  Transmission Date: 20161109
  Serious: No
  Sender: FDA-Public Use
  Company Number: US-TEVA-590179USA

PATIENT
  Sex: Female
  Weight: 53.12 kg

DRUGS (1)
  1. MONTELUKAST [Suspect]
     Active Substance: MONTELUKAST SODIUM
     Dates: start: 20150821

REACTIONS (6)
  - Diarrhoea [Unknown]
  - Hyperhidrosis [Unknown]
  - Nausea [Unknown]
  - Visual impairment [Unknown]
  - Chills [Unknown]
  - Abdominal pain [Unknown]
